FAERS Safety Report 9496562 (Version 2)
Quarter: 2013Q3

REPORT INFORMATION
  Report Type: Report from Study
  Country: US (occurrence: US)
  Receive Date: 20130904
  Receipt Date: 20130918
  Transmission Date: 20140515
  Serious: No
  Sender: FDA-Public Use
  Company Number: US-VERTEX PHARMACEUTICALS INC-2013-009243

PATIENT
  Age: 52 Year
  Sex: Male

DRUGS (8)
  1. VX-950 (TELAPREVIR) [Suspect]
     Indication: HEPATITIS C
     Dosage: UNK
     Route: 048
     Dates: start: 20130809
  2. PEGASYS [Suspect]
     Indication: HEPATITIS C
     Dosage: UNK
     Dates: start: 20130809
  3. RIBAVIRIN [Suspect]
     Indication: HEPATITIS C
     Dosage: UNK
     Dates: start: 20130809
  4. OMEPRAZOLE [Concomitant]
  5. ADVAIR [Concomitant]
  6. ATENOLOL [Concomitant]
  7. NASONEX [Concomitant]
  8. ASA [Concomitant]

REACTIONS (2)
  - Irritability [Not Recovered/Not Resolved]
  - Rash pruritic [Not Recovered/Not Resolved]
